FAERS Safety Report 18286220 (Version 3)
Quarter: 2025Q3

REPORT INFORMATION
  Report Type: Report from Study
  Country: BR (occurrence: BR)
  Receive Date: 20200919
  Receipt Date: 20250703
  Transmission Date: 20251020
  Serious: Yes (Death, Hospitalization, Other)
  Sender: INCYTE
  Company Number: BR-002147023-NVSC2020BR251853

PATIENT
  Age: 72 Year

DRUGS (2)
  1. RUXOLITINIB [Suspect]
     Active Substance: RUXOLITINIB
     Indication: Myelofibrosis
     Dosage: 1 DF, BID (1 TABLET OF 20 MG 2 TIMES PER DAY)
  2. THALIDOMIDE [Concomitant]
     Active Substance: THALIDOMIDE
     Indication: Myelodysplastic syndrome with single lineage dysplasia
     Dosage: 1 DF, QD (1 TABLET OF 50 MG ONCE PER DAY)

REACTIONS (5)
  - Acute respiratory distress syndrome [Unknown]
  - COVID-19 [Fatal]
  - Respiratory failure [Fatal]
  - Multiple organ dysfunction syndrome [Unknown]
  - Sepsis [Unknown]
